FAERS Safety Report 8758800 (Version 1)
Quarter: 2012Q4

REPORT INFORMATION
  Report Type: 
  Country: US (occurrence: US)
  Receive Date: 20120829
  Receipt Date: 20120829
  Transmission Date: 20130627
  Serious: No
  Sender: FDA-Public Use
  Company Number: US-B.I. PHARMACEUTICALS,INC./RIDGEFIELD-2012-BP-20579BP

PATIENT
  Sex: Male

DRUGS (11)
  1. SPIRIVA [Suspect]
     Indication: PNEUMOCONIOSIS
     Dosage: 18 mcg
     Route: 055
     Dates: start: 2002
  2. ADVAIR [Concomitant]
     Indication: PNEUMOCONIOSIS
     Route: 055
  3. PLAVIX [Concomitant]
     Indication: THROMBOSIS
     Route: 048
  4. BABY ASPIRIN [Concomitant]
     Indication: THROMBOSIS
     Dosage: 81 mg
     Route: 048
  5. THEODUR [Concomitant]
     Indication: BLOOD TRIGLYCERIDES ABNORMAL
     Dosage: 400 mg
     Route: 048
  6. XANAX [Concomitant]
     Indication: NERVOUS SYSTEM DISORDER
     Dosage: 1.5 mg
     Route: 048
  7. NORVASC [Concomitant]
     Indication: HYPERTENSION
     Dosage: 5 mg
     Route: 048
  8. XOPENEX [Concomitant]
     Indication: DYSPNOEA
     Route: 055
  9. PROVENTIL [Concomitant]
     Indication: LUNG DISORDER
     Route: 055
  10. OXYEN 3L/ MIN 24 HOURS [Concomitant]
  11. CENTRUM SILVER [Concomitant]
     Indication: SUPPLEMENTATION THERAPY
     Route: 048

REACTIONS (3)
  - Dry mouth [Not Recovered/Not Resolved]
  - Constipation [Not Recovered/Not Resolved]
  - Sleep disorder [Not Recovered/Not Resolved]
